FAERS Safety Report 17332559 (Version 4)
Quarter: 2021Q1

REPORT INFORMATION
  Report Type: Spontaneous
  Country: US (occurrence: US)
  Receive Date: 20200128
  Receipt Date: 20210309
  Transmission Date: 20210419
  Serious: Yes (Hospitalization)
  Sender: FDA-Public Use
  Company Number: US-SHIRE-US202003351

PATIENT
  Age: 75 Year
  Sex: Female

DRUGS (1)
  1. TAKHZYRO [Suspect]
     Active Substance: LANADELUMAB-FLYO
     Indication: HEREDITARY ANGIOEDEMA
     Dosage: 300 MILLILITER, 1X/2WKS
     Route: 065
     Dates: start: 20190701

REACTIONS (5)
  - COVID-19 [Recovering/Resolving]
  - Inappropriate schedule of product administration [Unknown]
  - Diarrhoea [Unknown]
  - Hereditary angioedema [Unknown]
  - Product dose omission issue [Not Recovered/Not Resolved]

NARRATIVE: CASE EVENT DATE: 20200123
